FAERS Safety Report 11357715 (Version 1)
Quarter: 2015Q3

REPORT INFORMATION
  Report Type: Spontaneous
  Country: US (occurrence: US)
  Receive Date: 20150803
  Receipt Date: 20150803
  Transmission Date: 20151125
  Serious: No
  Sender: FDA-Public Use
  Company Number: US-ELI_LILLY_AND_COMPANY-US201203002622

PATIENT
  Sex: Female

DRUGS (2)
  1. ZYPREXA [Suspect]
     Active Substance: OLANZAPINE
     Indication: SCHIZOPHRENIA
     Dosage: UNK
     Dates: start: 1994
  2. ZOLOFT [Concomitant]
     Active Substance: SERTRALINE HYDROCHLORIDE

REACTIONS (10)
  - Cerebral disorder [Not Recovered/Not Resolved]
  - Abnormal behaviour [Unknown]
  - Bipolar disorder [Not Recovered/Not Resolved]
  - Somnambulism [Unknown]
  - Disorientation [Unknown]
  - Memory impairment [Unknown]
  - Disturbance in attention [Unknown]
  - Automatism [Unknown]
  - Confusional state [Unknown]
  - Headache [Unknown]
